FAERS Safety Report 5789424-8 (Version None)
Quarter: 2008Q2

REPORT INFORMATION
  Report Type: 
  Country: None (occurrence: None)
  Receive Date: 20080618
  Receipt Date: 20080411
  Transmission Date: 20081010
  Serious: Yes (Hospitalization)
  Sender: FDA-Public Use
  Company Number: 200811345US

PATIENT
  Age: 69 Year
  Sex: Female

DRUGS (6)
  1. LANTUS [Suspect]
     Indication: TYPE 1 DIABETES MELLITUS
     Dosage: 17 U QD INJ
  2. OPTICLIK BLUE [Suspect]
     Indication: TYPE 1 DIABETES MELLITUS
  3. HUMALOG [Concomitant]
  4. BLOOD PRESSURE MEDICATION NOS [Concomitant]
  5. PRAVASTATIN SODIUM (PRAVACHOL) [Concomitant]
  6. ASPIRIN [Concomitant]

REACTIONS (1)
  - BLOOD GLUCOSE DECREASED [None]
